FAERS Safety Report 9793986 (Version 1)
Quarter: 2014Q1

REPORT INFORMATION
  Report Type: Spontaneous
  Country: US (occurrence: US)
  Receive Date: 20140102
  Receipt Date: 20140102
  Transmission Date: 20141002
  Serious: No
  Sender: FDA-Public Use
  Company Number: US-AMGEN-USASP2013090205

PATIENT
  Age: 51 Year
  Sex: Male

DRUGS (2)
  1. ENBREL [Suspect]
     Indication: PSORIASIS
     Dosage: 50 MG, QWK
     Route: 065
     Dates: start: 201306, end: 201308
  2. METHOTREXATE [Concomitant]
     Dosage: VARYING DOSES
     Dates: start: 1972, end: 201308

REACTIONS (2)
  - Skin plaque [Not Recovered/Not Resolved]
  - Drug ineffective [Not Recovered/Not Resolved]
